FAERS Safety Report 5817569-2 (Version None)
Quarter: 2008Q3

REPORT INFORMATION
  Report Type: 
  Country: None (occurrence: None)
  Receive Date: 20080722
  Receipt Date: 20080616
  Transmission Date: 20090109
  Serious: No
  Sender: FDA-Public Use
  Company Number: US-BAYER-200812741BCC

PATIENT
  Age: 79 Year
  Sex: Female
  Weight: 73 kg

DRUGS (4)
  1. ALEVE [Suspect]
     Indication: PAIN
     Dosage: UNIT DOSE: 220 MG
     Route: 048
     Dates: end: 20080501
  2. ALBUTEROL [Concomitant]
  3. PULMICORT-100 [Concomitant]
  4. DUONEB [Concomitant]

REACTIONS (1)
  - SOMNOLENCE [None]
